FAERS Safety Report 10268860 (Version 1)
Quarter: 2014Q2

REPORT INFORMATION
  Report Type: Not Available
  Country: AU (occurrence: AU)
  Receive Date: 20140630
  Receipt Date: 20140630
  Transmission Date: 20141212
  Serious: Yes (Other)
  Sender: FDA-Public Use
  Company Number: AU-NAPPMUNDI-GBR-2014-0018895

PATIENT
  Age: 77 Year
  Sex: Female

DRUGS (2)
  1. OXYCONTIN TABLETS [Suspect]
     Indication: PAIN
     Dosage: UNK
     Route: 048
     Dates: start: 2011
  2. ENDEP [Concomitant]

REACTIONS (2)
  - Dementia [Not Recovered/Not Resolved]
  - Anger [Not Recovered/Not Resolved]
